FAERS Safety Report 10150366 (Version 3)
Quarter: 2014Q2

REPORT INFORMATION
  Report Type: Report from Study
  Country: GR (occurrence: GR)
  Receive Date: 20140502
  Receipt Date: 20140508
  Transmission Date: 20141212
  Serious: Yes (Other)
  Sender: FDA-Public Use
  Company Number: PHHY2014GR051972

PATIENT
  Age: 67 Year
  Sex: Male
  Weight: 80 kg

DRUGS (6)
  1. AFINITOR [Suspect]
     Indication: COLON CANCER
     Dosage: 10 MG, QD
     Route: 048
     Dates: start: 201108
  2. AFINITOR [Suspect]
     Indication: OFF LABEL USE
  3. EUCREAS [Concomitant]
     Indication: DIABETES MELLITUS
     Dosage: 1 DF, BID
  4. SOLOSA [Concomitant]
     Indication: DIABETES MELLITUS
     Dosage: 1 MG, QD
  5. T4 [Concomitant]
     Dosage: 100 MG, QD
  6. SANDOSTATIN [Concomitant]

REACTIONS (10)
  - Diabetes mellitus [Recovering/Resolving]
  - Libido decreased [Recovering/Resolving]
  - Stomatitis [Recovering/Resolving]
  - Mouth ulceration [Not Recovered/Not Resolved]
  - Aphthous stomatitis [Not Recovered/Not Resolved]
  - Dry mouth [Unknown]
  - Cough [Unknown]
  - Pain [Unknown]
  - Peripheral swelling [Unknown]
  - Onychoclasis [Recovering/Resolving]
